FAERS Safety Report 25796117 (Version 1)
Quarter: 2025Q3

REPORT INFORMATION
  Report Type: Spontaneous
  Country: US (occurrence: None)
  Receive Date: 20250912
  Receipt Date: 20250912
  Transmission Date: 20251021
  Serious: No
  Sender: FDA-CTU
  Company Number: None

PATIENT
  Sex: Female

DRUGS (11)
  1. LENALIDOMIDE [Suspect]
     Active Substance: LENALIDOMIDE
     Indication: Product used for unknown indication
     Route: 048
  2. ACYCLOVIR  TAB 400MG [Concomitant]
  3. ALLOPURINOL TAB 300MG [Concomitant]
  4. ATORVASTATIN [Concomitant]
     Active Substance: ATORVASTATIN
  5. D3-50   CAP 50000UNT [Concomitant]
  6. DEXAMETHASONE [Concomitant]
     Active Substance: DEXAMETHASONE
  7. DICLOFENAC  GEL 1% [Concomitant]
  8. FOLIC ACID TAB 1000MCG [Concomitant]
  9. LOSARTAN/HCT TAB 100-25 [Concomitant]
  10. METOPROL TAR TAB 100MG [Concomitant]
  11. NALOXONE  INJ 0.4MG/ML [Concomitant]

REACTIONS (1)
  - Pulmonary thrombosis [None]
